FAERS Safety Report 10356647 (Version 3)
Quarter: 2014Q3

REPORT INFORMATION
  Report Type: Report from Study
  Country: US (occurrence: US)
  Receive Date: 20140801
  Receipt Date: 20140821
  Transmission Date: 20150326
  Serious: Yes (Hospitalization)
  Sender: FDA-Public Use
  Company Number: US-ASTELLAS-2014US002551

PATIENT
  Age: 15 Year
  Sex: Male

DRUGS (4)
  1. TACROLIMUS. [Suspect]
     Active Substance: TACROLIMUS
     Indication: DERMATITIS ATOPIC
     Dosage: 0.1 %, UNKNOWN FREQ.
     Route: 061
     Dates: start: 20000816
  2. SOLODYN [Concomitant]
     Active Substance: MINOCYCLINE HYDROCHLORIDE
     Indication: PRODUCT USED FOR UNKNOWN INDICATION
     Route: 048
  3. CLINDAMYCIN [Concomitant]
     Active Substance: CLINDAMYCIN\CLINDAMYCIN PHOSPHATE
     Indication: ACNE
     Dosage: UNK, UNKNOWN FREQ.
     Route: 065
  4. TAZORAC [Concomitant]
     Active Substance: TAZAROTENE
     Indication: ACNE
     Dosage: UNK, UNKNOWN FREQ.
     Route: 065

REACTIONS (2)
  - Appendicitis [Unknown]
  - Off label use [Unknown]

NARRATIVE: CASE EVENT DATE: 20131007
